FAERS Safety Report 5599771-0 (Version None)
Quarter: 2008Q1

REPORT INFORMATION
  Report Type: 
  Country: None (occurrence: None)
  Receive Date: 20080123
  Receipt Date: 20080116
  Transmission Date: 20080703
  Serious: Yes (Other)
  Sender: FDA-Public Use
  Company Number: FI-BRISTOL-MYERS SQUIBB COMPANY-14044556

PATIENT
  Age: 21 Year
  Sex: Female

DRUGS (1)
  1. ABILIFY [Suspect]

REACTIONS (4)
  - ALTERED STATE OF CONSCIOUSNESS [None]
  - BLINDNESS [None]
  - BLOOD PRESSURE DECREASED [None]
  - PALPITATIONS [None]
